FAERS Safety Report 10503958 (Version 1)
Quarter: 2014Q4

REPORT INFORMATION
  Report Type: Spontaneous
  Country: US (occurrence: None)
  Receive Date: 20141007
  Receipt Date: 20141007
  Transmission Date: 20150528
  Serious: Yes (Other)
  Sender: FDA-Public Use
  Company Number: None

PATIENT
  Age: 66 Year
  Sex: Male
  Weight: 76.8 kg

DRUGS (3)
  1. LOSARTAN [Suspect]
     Active Substance: LOSARTAN
     Indication: NEPHROPATHY
     Dosage: 25 MG EVERY DAY PO
     Route: 048
     Dates: start: 20140521, end: 20140625
  2. LOSARTAN [Suspect]
     Active Substance: LOSARTAN
     Indication: PROPHYLAXIS
     Dosage: 25 MG EVERY DAY PO
     Route: 048
     Dates: start: 20140521, end: 20140625
  3. LOSARTAN [Suspect]
     Active Substance: LOSARTAN
     Indication: CARDIAC FAILURE CONGESTIVE
     Dosage: 25 MG EVERY DAY PO
     Route: 048
     Dates: start: 20140521, end: 20140625

REACTIONS (1)
  - Angioedema [None]

NARRATIVE: CASE EVENT DATE: 20140625
